FAERS Safety Report 14101314 (Version 2)
Quarter: 2017Q4

REPORT INFORMATION
  Report Type: Report from Study
  Country: US (occurrence: US)
  Receive Date: 20171018
  Receipt Date: 20171024
  Transmission Date: 20180321
  Serious: Yes (Other)
  Sender: FDA-Public Use
  Company Number: US-GILEAD-2017-0297137

PATIENT
  Age: 35 Year
  Sex: Female
  Weight: 43 kg

DRUGS (7)
  1. TRAMADOL. [Concomitant]
     Active Substance: TRAMADOL
  2. LOPERAMIDE [Concomitant]
     Active Substance: LOPERAMIDE
  3. AMBRISENTAN [Suspect]
     Active Substance: AMBRISENTAN
     Indication: PULMONARY ARTERIAL HYPERTENSION
     Dosage: 10 MG, QD
     Route: 048
  4. FUROSEMIDE. [Concomitant]
     Active Substance: FUROSEMIDE
  5. SILDENAFIL. [Concomitant]
     Active Substance: SILDENAFIL
  6. PROMETHAZINE [Concomitant]
     Active Substance: PROMETHAZINE\PROMETHAZINE HYDROCHLORIDE
  7. VELETRI [Concomitant]
     Active Substance: EPOPROSTENOL

REACTIONS (10)
  - Tricuspid valve incompetence [Unknown]
  - Right atrial dilatation [Unknown]
  - Pericardial effusion [Unknown]
  - Right ventricular dilatation [Unknown]
  - Weight decreased [Not Recovered/Not Resolved]
  - Flushing [Unknown]
  - Diarrhoea [Recovered/Resolved]
  - Inferior vena cava dilatation [Unknown]
  - Pulmonary valve incompetence [Unknown]
  - Blood pressure decreased [Unknown]

NARRATIVE: CASE EVENT DATE: 20170820
